FAERS Safety Report 7993781-1 (Version None)
Quarter: 2011Q4

REPORT INFORMATION
  Report Type: 
  Country: None (occurrence: None)
  Receive Date: 20111220
  Receipt Date: 20111215
  Transmission Date: 20120403
  Serious: No
  Sender: FDA-Public Use
  Company Number: US-BIOGENIDEC-2011BI044053

PATIENT
  Sex: Female

DRUGS (1)
  1. TYSABRI [Suspect]
     Indication: MULTIPLE SCLEROSIS
     Route: 042
     Dates: start: 20111101, end: 20111101

REACTIONS (6)
  - SKIN BURNING SENSATION [None]
  - URTICARIA [None]
  - HYPERSENSITIVITY [None]
  - ANGINA PECTORIS [None]
  - SKIN REACTION [None]
  - SKIN LESION [None]
